FAERS Safety Report 7883976-X (Version None)
Quarter: 2011Q4

REPORT INFORMATION
  Report Type: 
  Country: None (occurrence: None)
  Receive Date: 20111102
  Receipt Date: 20111026
  Transmission Date: 20120403
  Serious: Yes (Other)
  Sender: FDA-Public Use
  Company Number: PHHY2011JP95602

PATIENT
  Age: 36 Year
  Sex: Female

DRUGS (1)
  1. IMATINIB [Suspect]
     Indication: ACUTE BIPHENOTYPIC LEUKAEMIA
     Route: 048

REACTIONS (2)
  - HAEMORRHAGE [None]
  - GASTRIC ANTRAL VASCULAR ECTASIA [None]
